FAERS Safety Report 25040883 (Version 2)
Quarter: 2025Q1

REPORT INFORMATION
  Report Type: Spontaneous
  Country: NL (occurrence: NL)
  Receive Date: 20250305
  Receipt Date: 20250320
  Transmission Date: 20250409
  Serious: Yes (Other)
  Sender: BOEHRINGER INGELHEIM
  Company Number: None

PATIENT
  Age: 45 Year
  Sex: Male
  Weight: 89 kg

DRUGS (1)
  1. EMPAGLIFLOZIN [Suspect]
     Active Substance: EMPAGLIFLOZIN
     Indication: Cardiac failure
     Dates: start: 20240301, end: 20240910

REACTIONS (2)
  - Pancreatitis acute [Recovered/Resolved]
  - Biliary obstruction [Recovered/Resolved]
